FAERS Safety Report 6516857-4 (Version None)
Quarter: 2009Q4

REPORT INFORMATION
  Report Type: 
  Country: None (occurrence: None)
  Receive Date: 20091223
  Receipt Date: 20091214
  Transmission Date: 20100525
  Serious: Yes (Hospitalization, Other)
  Sender: FDA-Public Use
  Company Number: JP-SANOFI-AVENTIS-2009SA005764

PATIENT
  Sex: Male
  Weight: 40.8 kg

DRUGS (6)
  1. CLOPIDOGREL BISULFATE [Suspect]
     Indication: CEREBRAL INFARCTION
     Route: 048
     Dates: start: 20090421, end: 20091019
  2. MUCOSOLVAN [Concomitant]
     Indication: SPUTUM RETENTION
     Route: 048
     Dates: start: 20090504
  3. VASOLAN [Concomitant]
     Indication: TACHYCARDIA
     Route: 048
     Dates: start: 20090504
  4. ALPHA-ADRENORECEPTOR ANTAGONISTS [Concomitant]
     Route: 048
     Dates: start: 20090504
  5. THEO-DUR [Concomitant]
     Route: 048
     Dates: start: 20090504
  6. SODIUM CHLORIDE [Concomitant]
     Indication: HYPONATRAEMIA
     Route: 048
     Dates: start: 20090504

REACTIONS (3)
  - C-REACTIVE PROTEIN INCREASED [None]
  - HAEMATEMESIS [None]
  - PYREXIA [None]
